FAERS Safety Report 6332412-3 (Version None)
Quarter: 2009Q3

REPORT INFORMATION
  Report Type: 
  Country: None (occurrence: None)
  Receive Date: 20090828
  Receipt Date: 20090821
  Transmission Date: 20100115
  Serious: Yes (Other)
  Sender: FDA-Public Use
  Company Number: JP-AVENTIS-200912374JP

PATIENT
  Sex: Male

DRUGS (1)
  1. LASIX [Suspect]
     Route: 048
     Dates: start: 20090821

REACTIONS (1)
  - FACIAL PALSY [None]
